FAERS Safety Report 8618584-6 (Version None)
Quarter: 2012Q3

REPORT INFORMATION
  Report Type: 
  Country: None (occurrence: None)
  Receive Date: 20120824
  Receipt Date: 20120820
  Transmission Date: 20120928
  Serious: No
  Sender: FDA-Public Use
  Company Number: US-PFIZER INC-2012205627

PATIENT
  Age: 68 Year
  Sex: Female
  Weight: 78.912 kg

DRUGS (3)
  1. ACTOPLUS MET [Concomitant]
     Indication: DIABETES MELLITUS
     Dosage: 30 MG, DAILY
  2. GLUCOPHAGE XR [Concomitant]
     Indication: DIABETES MELLITUS
     Dosage: 750 MG, DAILY
  3. PROTONIX [Suspect]
     Indication: GASTROOESOPHAGEAL REFLUX DISEASE
     Dosage: 40 MG, AS NEEDED

REACTIONS (2)
  - NEUROPATHY PERIPHERAL [None]
  - POLYP [None]
